FAERS Safety Report 18381661 (Version 1)
Quarter: 2020Q4

REPORT INFORMATION
  Report Type: Spontaneous
  Country: NL (occurrence: NL)
  Receive Date: 20201014
  Receipt Date: 20201014
  Transmission Date: 20210114
  Serious: Yes (Life-Threatening)
  Sender: FDA-Public Use
  Company Number: NL-EMCURE PHARMACEUTICALS LTD-2020-EPL-001550

PATIENT
  Age: 3 Decade
  Sex: Female

DRUGS (3)
  1. LYNESTRENOL [Interacting]
     Active Substance: LYNESTRENOL
     Indication: HORMONAL CONTRACEPTION
  2. TRANEXAMIC ACID. [Suspect]
     Active Substance: TRANEXAMIC ACID
     Indication: VAGINAL HAEMORRHAGE
  3. TRANEXAMIC ACID. [Interacting]
     Active Substance: TRANEXAMIC ACID
     Indication: UTERINE LEIOMYOMA

REACTIONS (2)
  - Drug interaction [Unknown]
  - Pulmonary embolism [Recovered/Resolved]
